FAERS Safety Report 8389015-9 (Version None)
Quarter: 2012Q2

REPORT INFORMATION
  Report Type: 
  Country: None (occurrence: None)
  Receive Date: 20120528
  Receipt Date: 20120524
  Transmission Date: 20120825
  Serious: No
  Sender: FDA-Public Use
  Company Number: US-PFIZER INC-2012087304

PATIENT
  Sex: Male
  Weight: 92.1 kg

DRUGS (6)
  1. LISINOPRIL [Concomitant]
     Dosage: 50 MG, UNK
  2. LISINOPRIL [Concomitant]
     Dosage: 10 MG, UNK
  3. MULTI-VITAMINS [Concomitant]
  4. SUTENT [Suspect]
     Indication: METASTATIC RENAL CELL CARCINOMA
     Dosage: 50 MG, 42 DAY CYCLE
     Dates: start: 20120410
  5. VITAMIN C [Concomitant]
     Dosage: 500 MG, UNK
  6. ZIAC [Concomitant]
     Dosage: 10MG/12.5MG

REACTIONS (6)
  - DYSPEPSIA [None]
  - WHITE BLOOD CELL COUNT DECREASED [None]
  - DIARRHOEA [None]
  - ORAL PAIN [None]
  - NEUTROPHIL COUNT DECREASED [None]
  - BLOOD PRESSURE INCREASED [None]
